FAERS Safety Report 4585174-4 (Version None)
Quarter: 2005Q1

REPORT INFORMATION
  Report Type: 
  Country: None (occurrence: None)
  Receive Date: 20050217
  Receipt Date: 20050114
  Transmission Date: 20050727
  Serious: No
  Sender: FDA-Public Use
  Company Number: US-GLAXOSMITHKLINE-A0540784A

PATIENT
  Age: 62 Year
  Sex: Female

DRUGS (5)
  1. WELLBUTRIN XL [Suspect]
     Indication: DEPRESSION
     Dosage: 150MG PER DAY
     Route: 048
     Dates: start: 20050104
  2. PROZAC [Concomitant]
  3. LIBRIUM [Concomitant]
  4. AMBIEN [Concomitant]
  5. LOPRESSOR [Concomitant]

REACTIONS (4)
  - ANXIETY [None]
  - DRY MOUTH [None]
  - INSOMNIA [None]
  - TREMOR [None]
